FAERS Safety Report 8809685 (Version 1)
Quarter: 2012Q4

REPORT INFORMATION
  Report Type: 
  Country: US (occurrence: US)
  Receive Date: 20120926
  Receipt Date: 20120926
  Transmission Date: 20130627
  Serious: Yes (Other)
  Sender: FDA-Public Use
  Company Number: US-BAYER-2012-097484

PATIENT
  Age: 68 Year
  Sex: Male

DRUGS (6)
  1. BAYER GENUINE ASPIRIN ORIGINAL STRENGTH [Suspect]
     Dosage: UNK
  2. PLAVIX [Suspect]
     Indication: STENT PLACEMENT
     Dosage: 75 mg, UNK
     Route: 048
     Dates: start: 2011, end: 201206
  3. CRESTOR [Concomitant]
     Dosage: UNK
  4. DIOVANE [Concomitant]
     Dosage: UNK
  5. METFORMIN [Concomitant]
     Dosage: UNK
  6. METOPROLOL [Concomitant]
     Dosage: UNK

REACTIONS (3)
  - Carotid artery occlusion [Not Recovered/Not Resolved]
  - Amnesia [Not Recovered/Not Resolved]
  - Fatigue [Not Recovered/Not Resolved]
